FAERS Safety Report 6590989-7 (Version None)
Quarter: 2010Q1

REPORT INFORMATION
  Report Type: 
  Country: None (occurrence: None)
  Receive Date: 20100219
  Receipt Date: 20100209
  Transmission Date: 20100710
  Serious: Yes (Hospitalization)
  Sender: FDA-Public Use
  Company Number: US-ELI_LILLY_AND_COMPANY-US201002002734

PATIENT
  Sex: Male

DRUGS (1)
  1. HUMATROPE [Suspect]
     Dosage: UNK, UNKNOWN

REACTIONS (1)
  - HOSPITALISATION [None]
